FAERS Safety Report 12092894 (Version 3)
Quarter: 2016Q2

REPORT INFORMATION
  Report Type: Spontaneous
  Country: US (occurrence: US)
  Receive Date: 20160219
  Receipt Date: 20160414
  Transmission Date: 20160815
  Serious: Yes (Other)
  Sender: FDA-Public Use
  Company Number: US-CELGENE-USA-2016022025

PATIENT
  Age: 50 Year
  Sex: Male
  Weight: 86.26 kg

DRUGS (1)
  1. OTEZLA [Suspect]
     Active Substance: APREMILAST
     Indication: PSORIATIC ARTHROPATHY
     Dosage: 60 MILLIGRAM
     Route: 048
     Dates: start: 20160104

REACTIONS (5)
  - Tremor [Recovering/Resolving]
  - Abdominal pain upper [Recovering/Resolving]
  - Flatulence [Unknown]
  - Drug ineffective [Unknown]
  - Frequent bowel movements [Recovering/Resolving]

NARRATIVE: CASE EVENT DATE: 2016
